FAERS Safety Report 21589787 (Version 1)
Quarter: 2022Q4

REPORT INFORMATION
  Report Type: Spontaneous
  Country: US (occurrence: US)
  Receive Date: 20221114
  Receipt Date: 20221114
  Transmission Date: 20230113
  Serious: Yes (Other)
  Sender: FDA-Public Use
  Company Number: US-SA-SAC20221110001517

PATIENT
  Age: 39 Year
  Sex: Female

DRUGS (1)
  1. ZANTAC [Suspect]
     Active Substance: RANITIDINE HYDROCHLORIDE
     Dosage: DOSE: UNKNOWN AT THIS TIME; FREQ; OTHER
     Dates: start: 201001, end: 202001

REACTIONS (2)
  - Oesophageal carcinoma [Unknown]
  - Breast disorder female [Unknown]

NARRATIVE: CASE EVENT DATE: 20180901
